FAERS Safety Report 11888416 (Version 1)
Quarter: 2016Q1

REPORT INFORMATION
  Report Type: Spontaneous
  Country: IT (occurrence: IT)
  Receive Date: 20160105
  Receipt Date: 20160105
  Transmission Date: 20160526
  Serious: Yes (Other)
  Sender: FDA-Public Use
  Company Number: IT-TEVA-622854ISR

PATIENT
  Age: 4 Year
  Sex: Male

DRUGS (6)
  1. INSULIN [Suspect]
     Active Substance: INSULIN NOS
     Route: 042
  2. GLIBENCLAMIDE [Suspect]
     Active Substance: GLYBURIDE
     Route: 065
  3. FUROSEMIDE. [Suspect]
     Active Substance: FUROSEMIDE
     Route: 065
  4. PROGESTERONE. [Suspect]
     Active Substance: PROGESTERONE
     Route: 065
  5. INSULIN [Suspect]
     Active Substance: INSULIN NOS
     Route: 058
  6. VALPROATE [Concomitant]
     Active Substance: VALPROATE SODIUM
     Indication: EPILEPSY
     Dosage: UP TO 60 MG/KG PER DAY
     Route: 065

REACTIONS (5)
  - Hypokalaemia [Unknown]
  - Metabolic alkalosis [Unknown]
  - Hirsutism [Unknown]
  - Hypoglycaemia [Unknown]
  - Nephrocalcinosis [Unknown]
